FAERS Safety Report 9189342 (Version 2)
Quarter: 2013Q1

REPORT INFORMATION
  Report Type: Spontaneous
  Country: US (occurrence: None)
  Receive Date: 20130322
  Receipt Date: 20130326
  Transmission Date: 20140127
  Serious: Yes (Other)
  Sender: FDA-Public Use
  Company Number: TPA2013A02222

PATIENT
  Age: 48 Year
  Sex: Male

DRUGS (2)
  1. ACTOPLUS MET (PIOGLITAZONE HYDROCHLORIDE, METFORMIN HYDROCHLORIDE) [Suspect]
     Indication: TYPE 2 DIABETES MELLITUS
     Dates: start: 20060110, end: 20060815
  2. ACTOS (PIOGLTAZONE HYDROCHLORIDE) [Suspect]
     Indication: TYPE 2 DIABETES MELLITUS
     Dates: start: 20061019, end: 20070418

REACTIONS (2)
  - Bladder cancer [None]
  - Metastases to bone [None]
